FAERS Safety Report 8599724-4 (Version None)
Quarter: 2012Q3

REPORT INFORMATION
  Report Type: 
  Country: None (occurrence: None)
  Receive Date: 20120816
  Receipt Date: 20120808
  Transmission Date: 20120928
  Serious: Yes (Other)
  Sender: FDA-Public Use
  Company Number: US-BAYER-2012-074829

PATIENT
  Age: 54 Year
  Sex: Male

DRUGS (1)
  1. NEXAVAR [Suspect]
     Indication: RENAL CELL CARCINOMA
     Dosage: 200 MG, BID ( 1 AM AND 1 PM)
     Dates: start: 20120719

REACTIONS (6)
  - FREQUENT BOWEL MOVEMENTS [None]
  - SKIN IRRITATION [None]
  - RASH [None]
  - PAIN IN EXTREMITY [None]
  - GAIT DISTURBANCE [None]
  - DIARRHOEA [None]
